FAERS Safety Report 4695576-3 (Version None)
Quarter: 2005Q2

REPORT INFORMATION
  Report Type: 
  Country: None (occurrence: None)
  Receive Date: 20050608
  Receipt Date: 20050222
  Transmission Date: 20051028
  Serious: No
  Sender: FDA-Public Use
  Company Number: A03200500506

PATIENT
  Age: 69 Year
  Sex: Male

DRUGS (9)
  1. ELOXATIN [Suspect]
     Indication: COLORECTAL CANCER METASTATIC
     Dosage: INTRAVENOUS NOS
     Route: 042
     Dates: start: 20050221, end: 20050221
  2. ELOXATIN [Suspect]
     Indication: METASTASES TO LIVER
     Dosage: INTRAVENOUS NOS
     Route: 042
     Dates: start: 20050221, end: 20050221
  3. AVASTIN [Suspect]
     Indication: COLORECTAL CANCER METASTATIC
     Dosage: INTRAVENOUS NOS
     Route: 042
  4. AVASTIN [Suspect]
     Indication: METASTASES TO LIVER
     Dosage: INTRAVENOUS NOS
     Route: 042
  5. FLUOROURACIL [Concomitant]
  6. LEUCOVORIN [Concomitant]
  7. GRANISETRON [Concomitant]
  8. MAGNESIUM [Concomitant]
  9. CALCIUM GLUCONATE [Concomitant]

REACTIONS (1)
  - SPONTANEOUS PENILE ERECTION [None]
